FAERS Safety Report 7502890-2 (Version None)
Quarter: 2011Q2

REPORT INFORMATION
  Report Type: 
  Country: None (occurrence: None)
  Receive Date: 20110525
  Receipt Date: 20100825
  Transmission Date: 20111010
  Serious: No
  Sender: FDA-Public Use
  Company Number: US-NOVEN-ALL1-2010-04511

PATIENT
  Sex: Male
  Weight: 54.422 kg

DRUGS (6)
  1. XOPENEX [Concomitant]
     Dosage: 1.25 MG, AS REQ'D
     Route: 055
  2. ADVAIR DISKUS 100/50 [Concomitant]
     Dosage: UNK, 1X/DAY:QD
     Route: 055
  3. XYZAL [Concomitant]
     Dosage: 5 MG, 1X/DAY:QD
     Route: 048
  4. DAYTRANA [Suspect]
     Dosage: 30 MG, 1X/DAY:QD
     Route: 062
     Dates: start: 20090101, end: 20090101
  5. NASONEX [Concomitant]
     Dosage: 50 UG, 1X/DAY:QD
     Route: 045
  6. SINGULAIR [Concomitant]
     Dosage: 5 MG, 1X/DAY:QD
     Route: 048

REACTIONS (1)
  - DRUG INEFFECTIVE [None]
